FAERS Safety Report 6600681-8 (Version None)
Quarter: 2010Q1

REPORT INFORMATION
  Report Type: 
  Country: None (occurrence: None)
  Receive Date: 20100223
  Receipt Date: 20100223
  Transmission Date: 20100710
  Serious: No
  Sender: FDA-Public Use
  Company Number: None

PATIENT
  Age: 50 Year
  Sex: Male
  Weight: 108.8633 kg

DRUGS (1)
  1. ZICAM GEL SWABS NO STRENGTH GIVEN ZICAM LLC [Suspect]
     Indication: NASOPHARYNGITIS
     Dosage: 1 SWAB EVERY 4 HOURS 4-7 DAYS NASAL  OVER 2 YEARS
     Route: 045
     Dates: start: 20061115, end: 20090515

REACTIONS (1)
  - ANOSMIA [None]
